FAERS Safety Report 8882451 (Version 2)
Quarter: 2013Q1

REPORT INFORMATION
  Report Type: Spontaneous
  Country: US (occurrence: US)
  Receive Date: 20121102
  Receipt Date: 20130103
  Transmission Date: 20140127
  Serious: Yes (Hospitalization)
  Sender: FDA-Public Use
  Company Number: US-B.I. PHARMACEUTICALS,INC./RIDGEFIELD-2012-BP-27065BP

PATIENT
  Age: 82 Year
  Sex: Male
  Weight: 54 kg

DRUGS (7)
  1. PRADAXA [Suspect]
     Indication: ATRIAL FIBRILLATION
     Dosage: 300 MG
     Route: 048
     Dates: start: 20111026, end: 20121026
  2. LOTREL [Concomitant]
  3. KCL [Concomitant]
     Dosage: 10 MEQ
  4. ATORVASTATIN [Concomitant]
     Dosage: 10 MG
  5. FINASTERIDE [Concomitant]
     Dosage: 5 MG
  6. TAMSULOSIN [Concomitant]
     Dosage: 0.4 MG
  7. CARVEDILOL [Concomitant]
     Dosage: 12.5 MG

REACTIONS (1)
  - Cerebral haemorrhage [Not Recovered/Not Resolved]
